FAERS Safety Report 24232798 (Version 2)
Quarter: 2024Q3

REPORT INFORMATION
  Report Type: Spontaneous
  Country: US (occurrence: US)
  Receive Date: 20240821
  Receipt Date: 20240828
  Transmission Date: 20241017
  Serious: No
  Sender: AMGEN
  Company Number: US-AMGEN-USASP2024165697

PATIENT
  Sex: Female

DRUGS (1)
  1. BUPHENYL [Suspect]
     Active Substance: SODIUM PHENYLBUTYRATE
     Indication: Urea cycle disorder
     Dosage: 4000 MILLIGRAM, QID (500MG 4 TIMES DAILY)
     Route: 048
     Dates: start: 201707

REACTIONS (1)
  - Vomiting [Unknown]
